FAERS Safety Report 18900740 (Version 3)
Quarter: 2022Q1

REPORT INFORMATION
  Report Type: Spontaneous
  Country: BR (occurrence: BR)
  Receive Date: 20210216
  Receipt Date: 20220331
  Transmission Date: 20220423
  Serious: Yes (Life-Threatening, Other)
  Sender: FDA-Public Use
  Company Number: NVSC2020BR312336

PATIENT
  Sex: Female

DRUGS (6)
  1. ESTRADIOL [Suspect]
     Active Substance: ESTRADIOL
     Indication: Product used for unknown indication
     Dosage: 1 DF(100 MCG)
     Route: 065
     Dates: start: 2001
  2. ESTRADIOL [Suspect]
     Active Substance: ESTRADIOL
     Dosage: 0.5 DF (50 MCG), BIW(EVERY 3 DAYS)
     Route: 065
  3. ESTRADIOL [Suspect]
     Active Substance: ESTRADIOL
     Dosage: 2 DF, UNKNOWN (100MCG)
     Route: 065
  4. ESTRADIOL [Suspect]
     Active Substance: ESTRADIOL
     Dosage: 50 MCG (20 YEARS AGO)
     Route: 065
     Dates: end: 202109
  5. ESTRADIOL [Suspect]
     Active Substance: ESTRADIOL
     Indication: Product used for unknown indication
     Dosage: 1 MG
     Route: 065
     Dates: start: 2021, end: 20220327
  6. ESTRADIOL [Suspect]
     Active Substance: ESTRADIOL
     Indication: Product used for unknown indication
     Dosage: 1 MG
     Route: 065
     Dates: start: 202109, end: 2021

REACTIONS (11)
  - Near death experience [Unknown]
  - Drug dependence [Unknown]
  - Insomnia [Unknown]
  - Hot flush [Unknown]
  - Weight increased [Unknown]
  - Weight decreased [Recovered/Resolved]
  - Alopecia [Unknown]
  - Pigmentation disorder [Recovered/Resolved]
  - Memory impairment [Unknown]
  - Hypertension [Unknown]
  - Intentional product use issue [Not Recovered/Not Resolved]

NARRATIVE: CASE EVENT DATE: 20210101
